FAERS Safety Report 8073308-9 (Version None)
Quarter: 2012Q1

REPORT INFORMATION
  Report Type: 
  Country: None (occurrence: None)
  Receive Date: 20120126
  Receipt Date: 20120111
  Transmission Date: 20120608
  Serious: Yes (Hospitalization)
  Sender: FDA-Public Use
  Company Number: TR-VALEANT-2012VX000358

PATIENT
  Age: 78 Year
  Sex: Female

DRUGS (1)
  1. TIMOLOL MALEATE [Suspect]
     Indication: GLAUCOMA
     Route: 061

REACTIONS (1)
  - ATRIOVENTRICULAR BLOCK COMPLETE [None]
